APPROVED DRUG PRODUCT: BUPRENORPHINE HYDROCHLORIDE AND NALOXONE HYDROCHLORIDE
Active Ingredient: BUPRENORPHINE HYDROCHLORIDE; NALOXONE HYDROCHLORIDE
Strength: EQ 8MG BASE;EQ 2MG BASE
Dosage Form/Route: TABLET;SUBLINGUAL
Application: A205022 | Product #002 | TE Code: AB
Applicant: LANNETT CO INC
Approved: Sep 19, 2016 | RLD: No | RS: No | Type: RX